FAERS Safety Report 22029976 (Version 1)
Quarter: 2023Q1

REPORT INFORMATION
  Report Type: Spontaneous
  Country: US (occurrence: US)
  Receive Date: 20230223
  Receipt Date: 20230223
  Transmission Date: 20230418
  Serious: Yes (Other)
  Sender: FDA-Public Use
  Company Number: US-LANTHEUS-LMI-2022-01142

PATIENT
  Age: 55 Year
  Sex: Female
  Weight: 88 kg

DRUGS (1)
  1. DEFINITY [Suspect]
     Active Substance: PERFLUTREN
     Indication: Echocardiogram
     Dosage: 2 ML (1.5 ML DEFINITY PREPARED IN 7 ML NORMAL SALINE)
     Route: 042
     Dates: start: 20220920, end: 20220920

REACTIONS (3)
  - Oxygen saturation decreased [Unknown]
  - Sputum discoloured [Unknown]
  - Cough [Unknown]

NARRATIVE: CASE EVENT DATE: 20220920
